FAERS Safety Report 23527332 (Version 1)
Quarter: 2024Q1

REPORT INFORMATION
  Report Type: Spontaneous
  Country: US (occurrence: US)
  Receive Date: 20240215
  Receipt Date: 20240215
  Transmission Date: 20240409
  Serious: No
  Sender: FDA-Public Use
  Company Number: US-BIOVITRUM-2023-US-017369

PATIENT
  Age: 44 Year
  Sex: Female

DRUGS (1)
  1. KINERET [Suspect]
     Active Substance: ANAKINRA
     Indication: Still^s disease
     Dosage: 100 MG, DAILY
     Route: 058
     Dates: start: 20231003

REACTIONS (6)
  - Off label use [Not Recovered/Not Resolved]
  - Product use issue [Unknown]
  - Weight increased [Unknown]
  - Product dose omission issue [Unknown]
  - Inflammatory marker decreased [Unknown]
  - Injection site pruritus [Unknown]

NARRATIVE: CASE EVENT DATE: 20231003
